FAERS Safety Report 24722619 (Version 1)
Quarter: 2024Q4

REPORT INFORMATION
  Report Type: Spontaneous
  Country: KW (occurrence: KW)
  Receive Date: 20241211
  Receipt Date: 20241211
  Transmission Date: 20250115
  Serious: Yes (Other)
  Sender: GUERBET
  Company Number: KW-GUERBET / KUWAIT-KW-20240001

PATIENT
  Age: 65 Year
  Sex: Female

DRUGS (4)
  1. LIPIODOL [Suspect]
     Active Substance: ETHIODIZED OIL
     Indication: Transcatheter arterial chemoembolisation
     Route: 013
     Dates: start: 20230820, end: 20230820
  2. LIPIODOL [Suspect]
     Active Substance: ETHIODIZED OIL
     Dosage: SIMILAR DOSING TO THE FIRST PROCEDURE (EXACT DOSE NOT REPORTED) WHICH WAS PERFORMED IN AUG-2023
     Route: 013
     Dates: start: 20231012, end: 20231012
  3. DOXORUBICIN [Suspect]
     Active Substance: DOXORUBICIN
     Indication: Transcatheter arterial chemoembolisation
     Route: 013
     Dates: start: 20230820, end: 20230820
  4. DOXORUBICIN [Suspect]
     Active Substance: DOXORUBICIN
     Dosage: SIMILAR DOSING TO THE FIRST PROCEDURE (EXACT DOSE NOT REPORTED) WHICH WAS PERFORMED IN AUG-2023
     Route: 013
     Dates: start: 20231012, end: 20231012

REACTIONS (3)
  - Acute respiratory distress syndrome [Recovered/Resolved]
  - Pneumonitis [Recovered/Resolved]
  - Cerebral artery embolism [Recovered/Resolved]

NARRATIVE: CASE EVENT DATE: 20230822
